FAERS Safety Report 4628773-3 (Version None)
Quarter: 2005Q2

REPORT INFORMATION
  Report Type: 
  Country: None (occurrence: None)
  Receive Date: 20050406
  Receipt Date: 20050328
  Transmission Date: 20051028
  Serious: Yes (Other)
  Sender: FDA-Public Use
  Company Number: USA-2005-0019539

PATIENT
  Age: 72 Year
  Sex: Female

DRUGS (1)
  1. LEVOBUPIVACAINE HYDROCHLORIDE (SIMILAR TO NDA 20-997)(LEVOBUPIVACAINE [Suspect]
     Indication: ANAESTHESIA
     Dosage: 7 ML, SINGLE, EPIDURAL
     Route: 008

REACTIONS (12)
  - ANAESTHETIC COMPLICATION [None]
  - AREFLEXIA [None]
  - BLOOD GLUCOSE INCREASED [None]
  - BLOOD PRESSURE DECREASED [None]
  - DEPRESSED LEVEL OF CONSCIOUSNESS [None]
  - HEART RATE INCREASED [None]
  - HYPERTENSION [None]
  - HYPOVENTILATION [None]
  - MEDICATION ERROR [None]
  - PROCEDURAL COMPLICATION [None]
  - RESPIRATORY FAILURE [None]
  - UNRESPONSIVE TO PAIN STIMULI [None]
